FAERS Safety Report 4945308-6 (Version None)
Quarter: 2006Q1

REPORT INFORMATION
  Report Type: 
  Country: None (occurrence: None)
  Receive Date: 20060316
  Receipt Date: 20060222
  Transmission Date: 20060701
  Serious: Yes (Other)
  Sender: FDA-Public Use
  Company Number: 2006UW03183

PATIENT
  Age: 15 Year
  Sex: Male

DRUGS (5)
  1. SEROQUEL [Suspect]
     Indication: AGGRESSION
     Dosage: 200 MG AM, 200 MG NOON, 550 MG HS
     Route: 048
     Dates: start: 20040101
  2. TEGRETOL [Concomitant]
     Indication: CONVULSION
     Route: 048
     Dates: start: 20050101
  3. TOPIRAMATE [Concomitant]
     Indication: CONVULSION
     Route: 048
     Dates: start: 20050101
  4. RISPERIDONE [Concomitant]
     Indication: ABNORMAL BEHAVIOUR
     Route: 048
  5. CLONIDINE [Concomitant]
     Indication: ATTENTION DEFICIT/HYPERACTIVITY DISORDER
     Dates: start: 20020101

REACTIONS (2)
  - AGGRESSION [None]
  - CONVULSION [None]
